FAERS Safety Report 14178337 (Version 2)
Quarter: 2018Q1

REPORT INFORMATION
  Report Type: Spontaneous
  Country: DE (occurrence: DE)
  Receive Date: 20171110
  Receipt Date: 20180313
  Transmission Date: 20180508
  Serious: Yes (Other)
  Sender: FDA-Public Use
  Company Number: DE-AMGEN-DEUSP2017154110

PATIENT
  Age: 37 Year
  Sex: Female

DRUGS (1)
  1. ENBREL [Suspect]
     Active Substance: ETANERCEPT
     Indication: PSORIASIS
     Dosage: 100 MG, QWK
     Route: 065
     Dates: start: 20170726, end: 20171004

REACTIONS (2)
  - Joint abscess [Recovered/Resolved]
  - Condition aggravated [Recovered/Resolved]
